FAERS Safety Report 8807454 (Version 5)
Quarter: 2012Q4

REPORT INFORMATION
  Report Type: Report from Study
  Country: CA (occurrence: CA)
  Receive Date: 20120925
  Receipt Date: 20121203
  Transmission Date: 20130627
  Serious: Yes (Hospitalization, Other)
  Sender: FDA-Public Use
  Company Number: CA-ROCHE-1132742

PATIENT
  Age: 31 None
  Sex: Male

DRUGS (2)
  1. VEMURAFENIB [Suspect]
     Indication: METASTATIC MALIGNANT MELANOMA
     Route: 048
     Dates: start: 20120820
  2. VEMURAFENIB [Suspect]
     Route: 048

REACTIONS (6)
  - Pyrexia [Recovered/Resolved]
  - Eating disorder [Unknown]
  - Metastases to liver [Unknown]
  - Eating disorder [Unknown]
  - Hepatic enzyme increased [Recovered/Resolved]
  - Toxicity to various agents [Recovered/Resolved]
